FAERS Safety Report 8045650-9 (Version None)
Quarter: 2012Q1

REPORT INFORMATION
  Report Type: 
  Country: None (occurrence: None)
  Receive Date: 20120113
  Receipt Date: 20120110
  Transmission Date: 20120608
  Serious: Yes (Other)
  Sender: FDA-Public Use
  Company Number: US-PFIZER INC-2012008066

PATIENT
  Sex: Male
  Weight: 109 kg

DRUGS (2)
  1. GLIMEPIRIDE [Concomitant]
     Indication: DIABETES MELLITUS
     Dosage: UNK
  2. DILANTIN-125 [Suspect]
     Indication: CONVULSION
     Dosage: UNK

REACTIONS (1)
  - CARDIAC OPERATION [None]
